FAERS Safety Report 12332756 (Version 4)
Quarter: 2017Q2

REPORT INFORMATION
  Report Type: Report from Study
  Country: JP (occurrence: JP)
  Receive Date: 20160504
  Receipt Date: 20170630
  Transmission Date: 20170830
  Serious: Yes (Life-Threatening, Hospitalization)
  Sender: FDA-Public Use
  Company Number: JP-ASTRAZENECA-2016SE47892

PATIENT
  Age: 28869 Day
  Sex: Male
  Weight: 58.4 kg

DRUGS (9)
  1. LANSOPRAZOLE. [Concomitant]
     Active Substance: LANSOPRAZOLE
     Indication: GASTROOESOPHAGEAL REFLUX DISEASE
     Route: 048
  2. ELIQUIS [Concomitant]
     Active Substance: APIXABAN
  3. BAYASPIRIN [Concomitant]
     Active Substance: ASPIRIN
  4. ONGLYZA [Suspect]
     Active Substance: SAXAGLIPTIN HYDROCHLORIDE
     Indication: TYPE 2 DIABETES MELLITUS
     Route: 048
     Dates: start: 20140520, end: 20170104
  5. COVERSYL [Concomitant]
     Active Substance: PERINDOPRIL
  6. PITAVASTATIN CA [Concomitant]
     Active Substance: PITAVASTATIN CALCIUM
     Indication: DYSLIPIDAEMIA
     Route: 048
  7. ARTIST [Concomitant]
     Active Substance: CARVEDILOL
  8. REBAMIPIDE [Concomitant]
     Active Substance: REBAMIPIDE
  9. SUREPOST [Concomitant]
     Active Substance: REPAGLINIDE
     Dates: start: 20160607

REACTIONS (2)
  - Acute myocardial infarction [Recovering/Resolving]
  - Gastric cancer [Not Recovered/Not Resolved]

NARRATIVE: CASE EVENT DATE: 20150317
